FAERS Safety Report 4691960-2 (Version None)
Quarter: 2005Q2

REPORT INFORMATION
  Report Type: 
  Country: None (occurrence: None)
  Receive Date: 20050614
  Receipt Date: 20050601
  Transmission Date: 20051028
  Serious: Yes (Disabling, Other)
  Sender: FDA-Public Use
  Company Number: SUSI-2005-00173

PATIENT
  Age: 59 Year
  Sex: Female
  Weight: 95.2 kg

DRUGS (7)
  1. AGRYLIN [Suspect]
     Indication: ESSENTIAL THROMBOCYTHAEMIA
     Dosage: SEE IIMAGE
     Dates: start: 20030521, end: 20030101
  2. AGRYLIN [Suspect]
     Indication: ESSENTIAL THROMBOCYTHAEMIA
     Dosage: SEE IIMAGE
     Dates: start: 20030101, end: 20031201
  3. LEVOXYL [Concomitant]
  4. AMILORIDE HCL W/HYDROCHLOROTHIAZIDE (HYDROCHLOROTHIAZIDE, AMILORIDE HY [Concomitant]
  5. PRINIVIL [Concomitant]
  6. VITAMIN B COMPLEX (THIAMINE HYDROCHLORIDE, RIBOFLAVIN,  PYRIDOXINE HYD [Concomitant]
  7. FOLIC ACID [Concomitant]

REACTIONS (15)
  - ASTHENIA [None]
  - AUTOIMMUNE DISORDER [None]
  - CARDIOLIPIN ANTIBODY POSITIVE [None]
  - CHEST PAIN [None]
  - EYE IRRITATION [None]
  - EYE PAIN [None]
  - GLAUCOMA [None]
  - HYPOTRICHOSIS [None]
  - NAUSEA [None]
  - OPTIC ISCHAEMIC NEUROPATHY [None]
  - PALPITATIONS [None]
  - PANCREATITIS ACUTE [None]
  - PHOTOPHOBIA [None]
  - RETINOGRAM ABNORMAL [None]
  - VISUAL FIELD DEFECT [None]
